FAERS Safety Report 21189119 (Version 3)
Quarter: 2022Q3

REPORT INFORMATION
  Report Type: Report from Study
  Country: US (occurrence: US)
  Receive Date: 20220809
  Receipt Date: 20220817
  Transmission Date: 20221026
  Serious: Yes (Other)
  Sender: FDA-Public Use
  Company Number: US-LEO Pharma-344178

PATIENT
  Age: 52 Year
  Sex: Female

DRUGS (2)
  1. ADBRY [Suspect]
     Active Substance: TRALOKINUMAB-LDRM
     Indication: Eczema
     Dosage: 4 INJECTIONS DURING THE LOADING DOSE THEREAFTER, 2 INJECTIONS DURING THE MAINTENANCE DOSE
  2. DEVICE [Suspect]
     Active Substance: DEVICE
     Indication: Eczema

REACTIONS (2)
  - Injection site pain [Recovered/Resolved]
  - Presyncope [Recovered/Resolved]
